FAERS Safety Report 19659108 (Version 1)
Quarter: 2021Q3

REPORT INFORMATION
  Report Type: Other
  Country: CA (occurrence: CA)
  Receive Date: 20210805
  Receipt Date: 20210805
  Transmission Date: 20211014
  Serious: Yes (Other)
  Sender: FDA-Public Use
  Company Number: CA-CELLTRION INC.-2021CA010163

PATIENT

DRUGS (9)
  1. LYRICA [Concomitant]
     Active Substance: PREGABALIN
  2. TYLENOL EXTRA STRENGTH [Concomitant]
     Active Substance: ACETAMINOPHEN
  3. LORAZEPAM. [Concomitant]
     Active Substance: LORAZEPAM
  4. XELJANZ [Suspect]
     Active Substance: TOFACITINIB CITRATE
     Indication: PRODUCT USED FOR UNKNOWN INDICATION
     Route: 065
  5. FLURBIPROFEN. [Concomitant]
     Active Substance: FLURBIPROFEN
  6. PREDNISONE. [Concomitant]
     Active Substance: PREDNISONE
  7. RISEDRONATE SODIUM. [Concomitant]
     Active Substance: RISEDRONATE SODIUM
  8. RITUXIMAB (UNKNOWN) [Suspect]
     Active Substance: RITUXIMAB
     Indication: RHEUMATOID ARTHRITIS
     Dosage: 1 G
     Route: 042
  9. LOSEC [Concomitant]
     Active Substance: OMEPRAZOLE

REACTIONS (3)
  - Headache [Not Recovered/Not Resolved]
  - Neuralgia [Not Recovered/Not Resolved]
  - Asthenia [Not Recovered/Not Resolved]
